FAERS Safety Report 6572413-3 (Version None)
Quarter: 2010Q1

REPORT INFORMATION
  Report Type: 
  Country: None (occurrence: None)
  Receive Date: 20100205
  Receipt Date: 20100114
  Transmission Date: 20100710
  Serious: Yes (Hospitalization)
  Sender: FDA-Public Use
  Company Number: US-ELI_LILLY_AND_COMPANY-US200912004989

PATIENT
  Sex: Female
  Weight: 53.52 kg

DRUGS (11)
  1. GEMCITABINE HCL [Suspect]
     Indication: NON-SMALL CELL LUNG CANCER
     Dosage: 1510 MG, OTHER
     Route: 042
     Dates: start: 20091209, end: 20091216
  2. CETUXIMAB [Suspect]
     Indication: NON-SMALL CELL LUNG CANCER
     Dosage: 378 MG, OTHER
     Route: 042
     Dates: start: 20091209, end: 20091216
  3. CARBOPLATIN [Suspect]
     Indication: NON-SMALL CELL LUNG CANCER
     Dosage: 446 MG, OTHER
     Route: 042
     Dates: start: 20091209, end: 20091209
  4. CLOTRIMAZOLE [Concomitant]
     Indication: ORAL FUNGAL INFECTION
     Dosage: 10 MG, 3/D
     Route: 048
     Dates: start: 20090101
  5. ACYCLOVIR [Concomitant]
     Indication: HERPES ZOSTER
     Dosage: 800 MG, OTHER
     Route: 048
     Dates: start: 20090101
  6. FENTANYL [Concomitant]
  7. PRILOSEC [Concomitant]
     Indication: DYSPEPSIA
     Dosage: 20 MG, AS NEEDED
     Route: 048
  8. LIPITOR [Concomitant]
     Dosage: 20 MG, DAILY (1/D)
     Route: 048
  9. HYDROCHLOROTHIAZIDE [Concomitant]
     Dosage: 12.5 MG, DAILY (1/D)
     Route: 048
  10. AMBIEN [Concomitant]
     Dosage: 12.5 MG, EACH EVENING
     Route: 048
  11. LEXAPRO [Concomitant]
     Dosage: 10 MG, DAILY (1/D)
     Route: 048

REACTIONS (3)
  - CONFUSIONAL STATE [None]
  - NEUTROPENIA [None]
  - SEPSIS [None]
